FAERS Safety Report 17325092 (Version 1)
Quarter: 2020Q1

REPORT INFORMATION
  Report Type: Spontaneous
  Country: US (occurrence: US)
  Receive Date: 20200126
  Receipt Date: 20200126
  Transmission Date: 20200409
  Serious: Yes (Other)
  Sender: FDA-Public Use
  Company Number: None

PATIENT
  Age: 50 Year
  Sex: Female
  Weight: 53.1 kg

DRUGS (1)
  1. PROLIA [Suspect]
     Active Substance: DENOSUMAB
     Dates: start: 20200102

REACTIONS (4)
  - Pain [None]
  - Gait inability [None]
  - Loss of personal independence in daily activities [None]
  - Insomnia [None]

NARRATIVE: CASE EVENT DATE: 20200111
